FAERS Safety Report 16544792 (Version 5)
Quarter: 2019Q4

REPORT INFORMATION
  Report Type: Report from Study
  Country: US (occurrence: US)
  Receive Date: 20190709
  Receipt Date: 20191004
  Transmission Date: 20200122
  Serious: Yes (Other)
  Sender: FDA-Public Use
  Company Number: US-JNJFOC-20190544528

PATIENT
  Sex: Male

DRUGS (22)
  1. MELATONIN [Concomitant]
     Active Substance: MELATONIN
  2. METOPROLOL SUCCINATE. [Concomitant]
     Active Substance: METOPROLOL SUCCINATE
  3. NITROGLYCERIN. [Concomitant]
     Active Substance: NITROGLYCERIN
  4. MYRBETRIQ [Concomitant]
     Active Substance: MIRABEGRON
  5. IMBRUVICA [Suspect]
     Active Substance: IBRUTINIB
     Dosage: 420 MG, QD
     Route: 048
     Dates: start: 20190514
  6. SAW PALMETTO                       /00833501/ [Concomitant]
     Active Substance: HERBALS\SAW PALMETTO
  7. COENZYME Q10 [Concomitant]
     Active Substance: UBIDECARENONE
  8. MSM [Concomitant]
     Active Substance: DIMETHYL SULFONE
  9. LYCOPENE [Concomitant]
     Active Substance: LYCOPENE
  10. FINASTERIDE. [Concomitant]
     Active Substance: FINASTERIDE
  11. OMEPRAZOLE. [Concomitant]
     Active Substance: OMEPRAZOLE
  12. IMBRUVICA [Suspect]
     Active Substance: IBRUTINIB
     Indication: CHRONIC LYMPHOCYTIC LEUKAEMIA
     Dosage: 420 MG, QD
     Route: 048
     Dates: start: 20190509
  13. ASPIRIN. [Concomitant]
     Active Substance: ASPIRIN
  14. FLOMAX [Concomitant]
     Active Substance: TAMSULOSIN HYDROCHLORIDE
  15. CURCUMA LONGA RHIZOME [Concomitant]
     Active Substance: HERBALS\TURMERIC
  16. ZINGIBER OFFICINALE RHIZOME [Concomitant]
  17. CRESTOR [Concomitant]
     Active Substance: ROSUVASTATIN CALCIUM
  18. GLUCOSAMINE CHONDROITIN COMPLEX    /06278301/ [Concomitant]
  19. FERROUS SULFATE. [Concomitant]
     Active Substance: FERROUS SULFATE
  20. IMBRUVICA [Suspect]
     Active Substance: IBRUTINIB
     Dosage: 420 MG, QD
     Route: 048
     Dates: start: 20190515
  21. IMBRUVICA [Suspect]
     Active Substance: IBRUTINIB
     Dosage: 420 MG, QD
     Route: 048
     Dates: start: 20190519
  22. MOBIC [Concomitant]
     Active Substance: MELOXICAM

REACTIONS (12)
  - Joint swelling [Unknown]
  - Dizziness [Unknown]
  - Rash [Unknown]
  - Diarrhoea [Recovering/Resolving]
  - Nausea [Unknown]
  - Muscle spasms [Recovering/Resolving]
  - Synovial fluid white blood cells positive [Unknown]
  - Peripheral swelling [Unknown]
  - Abdominal discomfort [Unknown]
  - Skin cancer [Recovered/Resolved]
  - Abdominal pain upper [Recovering/Resolving]
  - Rash pruritic [Unknown]

NARRATIVE: CASE EVENT DATE: 2019
